FAERS Safety Report 19784517 (Version 2)
Quarter: 2021Q4

REPORT INFORMATION
  Report Type: Spontaneous
  Country: IL (occurrence: IL)
  Receive Date: 20210903
  Receipt Date: 20211013
  Transmission Date: 20220303
  Serious: Yes (Hospitalization)
  Sender: FDA-Public Use
  Company Number: IL-NOVOPROD-842477

PATIENT
  Sex: Female

DRUGS (6)
  1. OZEMPIC [Suspect]
     Active Substance: SEMAGLUTIDE
     Indication: Type 2 diabetes mellitus
     Dosage: 35 CLICKS
     Route: 065
  2. CANDOR [Concomitant]
     Indication: Hypertension
     Dosage: UNK
  3. BISOPROLOL FUMARATE [Concomitant]
     Active Substance: BISOPROLOL FUMARATE
     Indication: Hypertension
     Dosage: UNK
  4. LERCANIDIPINE HYDROCHLORIDE [Concomitant]
     Active Substance: LERCANIDIPINE HYDROCHLORIDE
     Indication: Hypertension
     Dosage: UNK
  5. EUTHYROX [Concomitant]
     Active Substance: LEVOTHYROXINE SODIUM
     Indication: Thyroid disorder
     Dosage: UNK
  6. GLUCOMINE [METFORMIN HYDROCHLORIDE] [Concomitant]
     Dosage: UNK

REACTIONS (3)
  - Hyponatraemia [Not Recovered/Not Resolved]
  - Product prescribing error [Unknown]
  - Wrong technique in product usage process [Unknown]
